FAERS Safety Report 5945136-9 (Version None)
Quarter: 2008Q4

REPORT INFORMATION
  Report Type: 
  Country: None (occurrence: None)
  Receive Date: 20081107
  Receipt Date: 20081105
  Transmission Date: 20090506
  Serious: Yes (Disabling)
  Sender: FDA-Public Use
  Company Number: A0755013A

PATIENT
  Age: 71 Year
  Sex: Female

DRUGS (5)
  1. ADVAIR DISKUS 100/50 [Suspect]
     Indication: DRUG USE FOR UNKNOWN INDICATION
     Dosage: 1PUFF TWICE PER DAY
     Route: 055
     Dates: start: 20080501
  2. LEVOTHYROXINE SODIUM [Concomitant]
  3. PROAIR HFA [Concomitant]
  4. ALENDRONATE SODIUM [Concomitant]
  5. PIROXICAM [Concomitant]

REACTIONS (4)
  - DRUG INEFFECTIVE [None]
  - DYSPNOEA [None]
  - INHALATION THERAPY [None]
  - PRODUCT QUALITY ISSUE [None]
